FAERS Safety Report 10780085 (Version 1)
Quarter: 2015Q1

REPORT INFORMATION
  Report Type: Spontaneous
  Country: NL (occurrence: US)
  Receive Date: 20150210
  Receipt Date: 20150210
  Transmission Date: 20150721
  Serious: Yes (Death)
  Sender: FDA-Public Use
  Company Number: NL-BAYER-2015-015829

PATIENT
  Age: 46 Year
  Sex: Male

DRUGS (2)
  1. ESTROGEN NOS [Suspect]
     Active Substance: ESTROGENS
     Indication: HORMONE THERAPY
     Dosage: UNK
     Dates: start: 2001, end: 2005
  2. CLIMARA [Suspect]
     Active Substance: ESTRADIOL
     Indication: HORMONE THERAPY
     Dosage: 1 MG, OW
     Route: 062
     Dates: start: 2005

REACTIONS (1)
  - Invasive ductal breast carcinoma [Fatal]
